FAERS Safety Report 5780972-3 (Version None)
Quarter: 2008Q2

REPORT INFORMATION
  Report Type: 
  Country: None (occurrence: None)
  Receive Date: 20080618
  Receipt Date: 20080605
  Transmission Date: 20081010
  Serious: Yes (Hospitalization)
  Sender: FDA-Public Use
  Company Number: 2008AL004968

PATIENT
  Age: 83 Year
  Sex: Male

DRUGS (7)
  1. DIGOXIN [Suspect]
     Indication: ARRHYTHMIA
     Dosage: 0.125MG DAILY PO
     Route: 048
  2. DILTIAZEM HCL [Concomitant]
  3. NAMENDA [Concomitant]
  4. ARICEPT [Concomitant]
  5. TERAZOSIN HCL [Concomitant]
  6. COUMADIN [Concomitant]
  7. FLUDROCORTISONE ACETATE [Concomitant]

REACTIONS (2)
  - DIZZINESS [None]
  - HEART RATE DECREASED [None]
